FAERS Safety Report 23037845 (Version 1)
Quarter: 2023Q4

REPORT INFORMATION
  Report Type: Other
  Country: CN (occurrence: CN)
  Receive Date: 20231006
  Receipt Date: 20231006
  Transmission Date: 20240109
  Serious: Yes (Hospitalization, Other)
  Sender: FDA-Public Use
  Company Number: CN-GE HEALTHCARE-2023CSU008794

PATIENT
  Age: 76 Year
  Sex: Male
  Weight: 57 kg

DRUGS (5)
  1. OMNIPAQUE [Suspect]
     Active Substance: IOHEXOL
     Indication: Computerised tomogram
     Dosage: 35 GM, SINGLE
     Route: 041
     Dates: start: 20230921, end: 20230921
  2. OMNIPAQUE [Suspect]
     Active Substance: IOHEXOL
     Indication: Lacunar infarction
  3. OMNIPAQUE [Suspect]
     Active Substance: IOHEXOL
     Indication: Hepatic lesion
  4. OMNIPAQUE [Suspect]
     Active Substance: IOHEXOL
     Indication: Hepatic cyst
  5. OMNIPAQUE [Suspect]
     Active Substance: IOHEXOL
     Indication: Dizziness

REACTIONS (2)
  - Urinary retention [Not Recovered/Not Resolved]
  - Dysuria [Not Recovered/Not Resolved]

NARRATIVE: CASE EVENT DATE: 20230921
